FAERS Safety Report 5703747-X (Version None)
Quarter: 2008Q2

REPORT INFORMATION
  Report Type: 
  Country: None (occurrence: None)
  Receive Date: 20080413
  Receipt Date: 20080407
  Transmission Date: 20081010
  Serious: Yes (Hospitalization)
  Sender: FDA-Public Use
  Company Number: PHRM2008FR01139

PATIENT
  Age: 50 Year
  Sex: Female
  Weight: 62 kg

DRUGS (1)
  1. TERBINAFINE HCL [Suspect]
     Indication: ONYCHOMYCOSIS
     Dosage: 250 MG, QD
     Route: 048
     Dates: start: 20071114, end: 20080322

REACTIONS (4)
  - RETINAL DETACHMENT [None]
  - SURGERY [None]
  - VISION BLURRED [None]
  - VITREOUS FLOATERS [None]
